FAERS Safety Report 11915488 (Version 3)
Quarter: 2016Q1

REPORT INFORMATION
  Report Type: Report from Study
  Country: US (occurrence: US)
  Receive Date: 20160114
  Receipt Date: 20160224
  Transmission Date: 20160526
  Serious: Yes (Other)
  Sender: FDA-Public Use
  Company Number: US-AMGEN-USASL2016001856

PATIENT
  Age: 63 Year
  Sex: Female

DRUGS (2)
  1. ENBREL [Suspect]
     Active Substance: ETANERCEPT
     Indication: RHEUMATOID ARTHRITIS
     Dosage: 50 MG, QWK
     Route: 065
  2. METHOTREXATE [Concomitant]
     Active Substance: METHOTREXATE
     Dosage: UNK

REACTIONS (8)
  - Dental caries [Unknown]
  - Blister [Recovered/Resolved]
  - Abdominal discomfort [Recovered/Resolved]
  - Thyroidectomy [Unknown]
  - Hypoacusis [Unknown]
  - Arthritis [Unknown]
  - Visual impairment [Unknown]
  - Amnesia [Unknown]
